FAERS Safety Report 7478176-1 (Version None)
Quarter: 2011Q2

REPORT INFORMATION
  Report Type: 
  Country: None (occurrence: None)
  Receive Date: 20110513
  Receipt Date: 20110502
  Transmission Date: 20111010
  Serious: Yes (Hospitalization)
  Sender: FDA-Public Use
  Company Number: AU-JNJFOC-20110405016

PATIENT
  Sex: Male
  Weight: 84.1 kg

DRUGS (12)
  1. ZYTIGA [Suspect]
     Route: 048
  2. CHOLECALCIFEROL [Concomitant]
     Indication: VITAMIN D DEFICIENCY
     Route: 048
  3. IRON COMPLEX [Concomitant]
     Indication: FATIGUE
     Route: 048
  4. FELODIPINE [Concomitant]
     Indication: HYPERTENSION
     Route: 048
  5. FOSINOPRIL SODIUM [Concomitant]
     Indication: HYPERTENSION
     Dosage: 20/12.5 MG
     Route: 048
  6. NYSTATIN [Concomitant]
     Indication: ORAL CANDIDIASIS
     Dosage: AS NEEDED
     Route: 048
  7. ZYTIGA [Suspect]
     Indication: PROSTATE CANCER METASTATIC
     Dosage: OPEN LABEL
     Route: 048
  8. PREDNISONE [Suspect]
     Indication: PROSTATE CANCER METASTATIC
     Route: 048
  9. LEUPROLIDE ACETATE [Concomitant]
     Indication: PROSTATE CANCER
     Route: 030
  10. POTASSIUM CHLORIDE [Concomitant]
     Indication: HYPOKALAEMIA
     Route: 048
  11. PREDNISONE [Suspect]
     Route: 048
  12. LEUPROLIDE ACETATE [Concomitant]
     Indication: HORMONE THERAPY
     Route: 065

REACTIONS (2)
  - HAEMATURIA [None]
  - URINARY RETENTION [None]
